FAERS Safety Report 17806460 (Version 2)
Quarter: 2020Q2

REPORT INFORMATION
  Report Type: Spontaneous
  Country: US (occurrence: US)
  Receive Date: 20200520
  Receipt Date: 20200528
  Transmission Date: 20200714
  Serious: Yes (Other)
  Sender: FDA-Public Use
  Company Number: US-DRREDDYS-USA/USA/20/0123130

PATIENT
  Age: 66 Year
  Sex: Male

DRUGS (3)
  1. SEVELAMER CARBONATE TABLETS, 800 MG [Suspect]
     Active Substance: SEVELAMER CARBONATE
     Indication: HYPERPHOSPHATAEMIA
     Route: 065
  2. SEVELAMER CARBONATE TABLETS, 800 MG [Interacting]
     Active Substance: SEVELAMER CARBONATE
     Route: 065
  3. KAYEXALATE [Interacting]
     Active Substance: SODIUM POLYSTYRENE SULFONATE
     Indication: HYPERKALAEMIA
     Dosage: SINGLE DOSE
     Route: 065

REACTIONS (5)
  - Gastrointestinal necrosis [Unknown]
  - Hyperkalaemia [Recovered/Resolved]
  - Renal failure [Unknown]
  - Chronic respiratory failure [Unknown]
  - Drug interaction [Unknown]
